FAERS Safety Report 23139255 (Version 2)
Quarter: 2023Q4

REPORT INFORMATION
  Report Type: Report from Study
  Country: BR (occurrence: BR)
  Receive Date: 20231102
  Receipt Date: 20231201
  Transmission Date: 20240109
  Serious: Yes (Life-Threatening, Other)
  Sender: FDA-Public Use
  Company Number: BR-JNJFOC-20231063208

PATIENT
  Age: 29 Year
  Sex: Female
  Weight: 66.4 kg

DRUGS (29)
  1. AMIVANTAMAB [Suspect]
     Active Substance: AMIVANTAMAB
     Indication: Non-small cell lung cancer
     Dosage: 250
     Route: 042
     Dates: start: 20230914
  2. AMIVANTAMAB [Suspect]
     Active Substance: AMIVANTAMAB
     Dosage: 250
     Route: 042
     Dates: start: 20230915
  3. AMIVANTAMAB [Suspect]
     Active Substance: AMIVANTAMAB
     Dosage: 250
     Route: 042
     Dates: start: 20230921
  4. AMIVANTAMAB [Suspect]
     Active Substance: AMIVANTAMAB
     Dosage: 250
     Route: 042
     Dates: start: 20230928
  5. AMIVANTAMAB [Suspect]
     Active Substance: AMIVANTAMAB
     Dosage: 250
     Route: 042
     Dates: start: 20231005
  6. LAZERTINIB [Suspect]
     Active Substance: LAZERTINIB
     Indication: Non-small cell lung cancer
     Dosage: 3
     Route: 048
     Dates: start: 20230914, end: 20231004
  7. LAZERTINIB [Suspect]
     Active Substance: LAZERTINIB
     Dosage: 3
     Route: 048
     Dates: start: 20231005
  8. PEMETREXED [Concomitant]
     Active Substance: PEMETREXED
     Dosage: 134.2
     Dates: start: 20231005
  9. PEMETREXED [Concomitant]
     Active Substance: PEMETREXED
     Dosage: 131.2
     Dates: start: 20230914
  10. TRIAMCINOLONE ACETONIDE [Concomitant]
     Active Substance: TRIAMCINOLONE ACETONIDE
     Dates: start: 20231005
  11. NYSTATIN [Concomitant]
     Active Substance: NYSTATIN
     Indication: Stomatitis
     Dates: start: 20230914
  12. DOXYCYCLINE HYDROCHLORIDE HEMIETHANOLATE HEMIHYDRATE [Concomitant]
     Dates: start: 20230914
  13. COLLAGENASE [Concomitant]
     Active Substance: COLLAGENASE CLOSTRIDIUM HISTOLYTICUM
     Indication: Wound treatment
  14. FERROUS SULFATE [Concomitant]
     Active Substance: FERROUS SULFATE
     Indication: Prophylaxis
  15. DIMENHYDRINATE [Concomitant]
     Active Substance: DIMENHYDRINATE
     Dates: start: 20230210
  16. LEVONORGESTREL AND ETHINYL ESTRADIOL [Concomitant]
     Active Substance: ETHINYL ESTRADIOL\LEVONORGESTREL
     Dates: start: 20230814
  17. OMEPRAZOLE [Concomitant]
     Active Substance: OMEPRAZOLE
     Indication: Gastrointestinal disorder therapy
     Dates: start: 20230814, end: 20231005
  18. OMEPRAZOLE [Concomitant]
     Active Substance: OMEPRAZOLE
     Indication: Gastrointestinal disorder therapy
  19. PREDNISONE [Concomitant]
     Active Substance: PREDNISONE
     Indication: Illness
     Dates: start: 20230824
  20. SCOPOLAMINE [Concomitant]
     Active Substance: SCOPOLAMINE
     Dates: start: 20230911
  21. FOLIC ACID [Concomitant]
     Active Substance: FOLIC ACID
     Indication: Prophylaxis
     Dates: start: 20230906
  22. CYANOCOBALAMIN [Concomitant]
     Active Substance: CYANOCOBALAMIN
     Indication: Prophylaxis
     Dates: start: 20230906
  23. DEXAMETHASONE [Concomitant]
     Active Substance: DEXAMETHASONE
     Indication: Prophylaxis
     Dates: start: 20230913, end: 20230915
  24. VANCOMYCIN HYDROCHLORIDE [Concomitant]
     Active Substance: VANCOMYCIN HYDROCHLORIDE
     Indication: Postoperative wound infection
     Dates: start: 20231111
  25. MEROPENEM [Concomitant]
     Active Substance: MEROPENEM
     Indication: Alanine aminotransferase increased
     Dates: start: 20231111
  26. PREDNISONE [Concomitant]
     Active Substance: PREDNISONE
     Indication: Alanine aminotransferase increased
     Dates: start: 20231023
  27. HERBALS\SUNFLOWER OIL [Concomitant]
     Active Substance: HERBALS\SUNFLOWER OIL
     Indication: Alanine aminotransferase increased
     Dates: start: 20231023
  28. AXETILCEFUROXIMA [Concomitant]
     Indication: Alanine aminotransferase increased
     Dates: start: 20231023
  29. LIDOCAINE [Concomitant]
     Active Substance: LIDOCAINE
     Indication: Alanine aminotransferase increased
     Dates: start: 20231016

REACTIONS (1)
  - Alanine aminotransferase increased [Recovered/Resolved]

NARRATIVE: CASE EVENT DATE: 20231023
